FAERS Safety Report 6365607-3 (Version None)
Quarter: 2009Q3

REPORT INFORMATION
  Report Type: 
  Country: None (occurrence: None)
  Receive Date: 20090919
  Receipt Date: 20090817
  Transmission Date: 20100115
  Serious: No
  Sender: FDA-Public Use
  Company Number: US-ABBOTT-09P-163-0592240-00

PATIENT
  Sex: Female
  Weight: 61.29 kg

DRUGS (6)
  1. HUMIRA [Suspect]
     Indication: CROHN'S DISEASE
     Dates: start: 20090717
  2. PHENERGAN [Concomitant]
     Indication: NAUSEA
  3. ENTOCORT EC [Concomitant]
     Indication: DRUG USE FOR UNKNOWN INDICATION
  4. ZOLOFT [Concomitant]
     Indication: DEPRESSION
  5. VALTREX [Concomitant]
     Indication: HERPES ZOSTER
     Dosage: TAKES WHEN SHINGLES ARE ACTIVE
  6. ULTRAM [Concomitant]
     Indication: PAIN

REACTIONS (2)
  - DRUG DOSE OMISSION [None]
  - WRONG TECHNIQUE IN DRUG USAGE PROCESS [None]
